FAERS Safety Report 17292123 (Version 1)
Quarter: 2020Q1

REPORT INFORMATION
  Report Type: Report from Study
  Country: CZ (occurrence: CZ)
  Receive Date: 20200121
  Receipt Date: 20200121
  Transmission Date: 20200409
  Serious: Yes (Other)
  Sender: FDA-Public Use
  Company Number: CZ-BAYER-2019-222325

PATIENT
  Age: 41 Year
  Sex: Female
  Weight: 63 kg

DRUGS (2)
  1. MIRENA [Suspect]
     Active Substance: LEVONORGESTREL
     Indication: MENORRHAGIA
  2. MIRENA [Suspect]
     Active Substance: LEVONORGESTREL
     Indication: MENORRHAGIA
     Dosage: 20 MCG/24HR, CONT
     Route: 015
     Dates: start: 20190527, end: 20191003

REACTIONS (4)
  - Pain [None]
  - Device expulsion [Recovered/Resolved]
  - Genital haemorrhage [None]
  - Abdominal pain lower [None]

NARRATIVE: CASE EVENT DATE: 20190621
